FAERS Safety Report 9384688 (Version 1)
Quarter: 2013Q3

REPORT INFORMATION
  Report Type: Spontaneous
  Country: AU (occurrence: AU)
  Receive Date: 20130705
  Receipt Date: 20130705
  Transmission Date: 20140515
  Serious: Yes (Life-Threatening, Hospitalization)
  Sender: FDA-Public Use
  Company Number: AU-ASTRAZENECA-2013SE50333

PATIENT
  Age: 58 Year
  Sex: Male
  Weight: 83.3 kg

DRUGS (10)
  1. CANDESARTAN [Suspect]
     Indication: HYPERTENSION
     Route: 048
     Dates: end: 20130103
  2. GEMCITABINE [Suspect]
     Indication: DIFFUSE LARGE B-CELL LYMPHOMA
     Route: 042
     Dates: start: 20121231, end: 20130121
  3. GEMCITABINE [Suspect]
     Indication: DIFFUSE LARGE B-CELL LYMPHOMA
     Route: 042
     Dates: start: 20130124, end: 20130126
  4. GEMCITABINE [Suspect]
     Indication: DIFFUSE LARGE B-CELL LYMPHOMA
     Dosage: DAILY
     Route: 042
     Dates: end: 20130128
  5. GEMCITABINE [Suspect]
     Indication: DIFFUSE LARGE B-CELL LYMPHOMA
     Dosage: DAILY
     Route: 042
     Dates: start: 20130213
  6. OXYCONTIN [Concomitant]
     Indication: ARTHRALGIA
     Dosage: AS REQUIRED
     Route: 048
     Dates: start: 20121210
  7. OXYCODONE [Concomitant]
     Indication: ARTHRALGIA
     Dosage: AS REQUIRED
     Route: 048
     Dates: start: 20121210
  8. FAMCICLOVIR [Concomitant]
     Indication: ANTIVIRAL PROPHYLAXIS
     Route: 048
     Dates: start: 20121210
  9. ALLOPURINOL [Concomitant]
     Indication: PROPHYLAXIS
     Route: 048
     Dates: start: 20121213
  10. PREDNISOLONE [Concomitant]
     Indication: DIFFUSE LARGE B-CELL LYMPHOMA
     Dosage: DAILY
     Route: 048
     Dates: start: 20121215, end: 20121219

REACTIONS (6)
  - Hypotension [Recovered/Resolved]
  - Febrile neutropenia [Recovered/Resolved]
  - Pharyngeal inflammation [Recovered/Resolved]
  - Nerve root compression [Recovered/Resolved]
  - Lobar pneumonia [Recovered/Resolved]
  - Staphylococcus test positive [Unknown]
